FAERS Safety Report 13338520 (Version 1)
Quarter: 2017Q1

REPORT INFORMATION
  Report Type: Spontaneous
  Country: PL (occurrence: PL)
  Receive Date: 20170315
  Receipt Date: 20170315
  Transmission Date: 20170428
  Serious: Yes (Other)
  Sender: FDA-Public Use
  Company Number: PL-SYNTHON BV-NL01PV17_43236

PATIENT
  Sex: Male

DRUGS (1)
  1. FOKUSIN [Suspect]
     Active Substance: TAMSULOSIN
     Dosage: UNK

REACTIONS (2)
  - Urinary retention [Unknown]
  - Product physical issue [Unknown]
